FAERS Safety Report 7966251 (Version 2)
Quarter: 2012Q4

REPORT INFORMATION
  Report Type: 
  Country: US (occurrence: US)
  Receive Date: 20110531
  Receipt Date: 20120830
  Transmission Date: 20130627
  Serious: Yes (Hospitalization)
  Sender: FDA-Public Use
  Company Number: US-US-EMD SERONO, INC.-7060742

PATIENT
  Age: 67 None
  Sex: Female

DRUGS (2)
  1. REBIF [Suspect]
     Indication: MULTIPLE SCLEROSIS
     Route: 058
     Dates: start: 20100506, end: 20110422
  2. TRILEPTAL [Concomitant]
     Indication: BIPOLAR DISORDER
     Dates: end: 201105

REACTIONS (8)
  - Catatonia [Recovering/Resolving]
  - Tremor [Recovering/Resolving]
  - Dysarthria [Recovering/Resolving]
  - Blood potassium decreased [Recovering/Resolving]
  - Speech disorder [Recovering/Resolving]
  - Haematochezia [Recovering/Resolving]
  - Hypertension [Recovering/Resolving]
  - Multiple sclerosis [Not Recovered/Not Resolved]
